FAERS Safety Report 6854755-7 (Version None)
Quarter: 2010Q3

REPORT INFORMATION
  Report Type: 
  Country: None (occurrence: None)
  Receive Date: 20100717
  Receipt Date: 20080113
  Transmission Date: 20110219
  Serious: Yes (Other)
  Sender: FDA-Public Use
  Company Number: US-PFIZER INC-2008004604

PATIENT
  Sex: Male
  Weight: 122.5 kg

DRUGS (4)
  1. CHAMPIX [Suspect]
     Indication: SMOKING CESSATION THERAPY
     Dates: start: 20080101
  2. LIPITOR [Concomitant]
  3. SYNTHROID [Concomitant]
  4. NAPROXEN [Concomitant]

REACTIONS (3)
  - ABNORMAL DREAMS [None]
  - DEPRESSION [None]
  - IRRITABILITY [None]
